FAERS Safety Report 10027422 (Version 2)
Quarter: 2014Q1

REPORT INFORMATION
  Report Type: Spontaneous
  Country: US (occurrence: US)
  Receive Date: 20140321
  Receipt Date: 20140321
  Transmission Date: 20141002
  Serious: Yes (Disabling)
  Sender: FDA-Public Use
  Company Number: US-GE HEALTHCARE MEDICAL DIAGNOSTICS-OSCN-PR-0910S-0473

PATIENT
  Age: 42 Year
  Sex: Female

DRUGS (57)
  1. OMNISCAN [Suspect]
     Indication: AORTIC DISSECTION
     Route: 042
     Dates: start: 20050201, end: 20050201
  2. OMNISCAN [Suspect]
     Indication: OEDEMA
     Route: 042
     Dates: start: 20050204, end: 20050204
  3. OMNISCAN [Suspect]
     Route: 042
     Dates: start: 20050303, end: 20050303
  4. GADOLINIUM (UNSPECIFIED) [Suspect]
     Indication: PRODUCT USED FOR UNKNOWN INDICATION
     Route: 042
     Dates: start: 20050201, end: 20050201
  5. GADOLINIUM (UNSPECIFIED) [Suspect]
     Route: 042
     Dates: start: 20050302, end: 20050302
  6. OPTIMARK [Suspect]
     Indication: AORTIC DISSECTION
     Route: 042
     Dates: start: 20050908, end: 20050908
  7. OPTIMARK [Suspect]
     Route: 042
     Dates: start: 20060309, end: 20060309
  8. OPTIMARK [Suspect]
     Route: 042
     Dates: start: 20060713, end: 20060713
  9. ALBUMIN [Concomitant]
     Indication: PRODUCT USED FOR UNKNOWN INDICATION
  10. ALBUTEROL [Concomitant]
     Indication: PRODUCT USED FOR UNKNOWN INDICATION
  11. ARAMIS [Concomitant]
     Indication: PRODUCT USED FOR UNKNOWN INDICATION
  12. ARANESP [Concomitant]
     Indication: PRODUCT USED FOR UNKNOWN INDICATION
  13. ASA [Concomitant]
     Indication: PRODUCT USED FOR UNKNOWN INDICATION
  14. ATENOLOL [Concomitant]
     Indication: PRODUCT USED FOR UNKNOWN INDICATION
  15. AZETREONAM [Concomitant]
     Indication: PRODUCT USED FOR UNKNOWN INDICATION
  16. BISACODYL [Concomitant]
     Indication: PRODUCT USED FOR UNKNOWN INDICATION
  17. CALCIUM GLUCONATE [Concomitant]
     Indication: PRODUCT USED FOR UNKNOWN INDICATION
  18. CELLCEPT [Concomitant]
     Indication: PRODUCT USED FOR UNKNOWN INDICATION
  19. COLACE [Concomitant]
     Indication: PRODUCT USED FOR UNKNOWN INDICATION
  20. COUMADIN [Concomitant]
     Indication: PRODUCT USED FOR UNKNOWN INDICATION
  21. COZAAR [Concomitant]
     Indication: PRODUCT USED FOR UNKNOWN INDICATION
  22. DARVOCET [Concomitant]
     Indication: PRODUCT USED FOR UNKNOWN INDICATION
  23. DIATX [Concomitant]
     Indication: PRODUCT USED FOR UNKNOWN INDICATION
  24. DULCOLAX [Concomitant]
     Indication: PRODUCT USED FOR UNKNOWN INDICATION
  25. ENALAPRIL [Concomitant]
     Indication: PRODUCT USED FOR UNKNOWN INDICATION
  26. FENTANYL [Concomitant]
     Indication: PRODUCT USED FOR UNKNOWN INDICATION
  27. FERROUS GLUCONATE [Concomitant]
     Indication: PRODUCT USED FOR UNKNOWN INDICATION
  28. FERROUS SULFATE [Concomitant]
     Indication: PRODUCT USED FOR UNKNOWN INDICATION
  29. FOSRENOL [Concomitant]
     Indication: PRODUCT USED FOR UNKNOWN INDICATION
  30. HEPARIN [Concomitant]
     Indication: PRODUCT USED FOR UNKNOWN INDICATION
  31. INSULIN [Concomitant]
     Indication: PRODUCT USED FOR UNKNOWN INDICATION
  32. LASIX [Concomitant]
     Indication: PRODUCT USED FOR UNKNOWN INDICATION
  33. LIPITOR [Concomitant]
     Indication: PRODUCT USED FOR UNKNOWN INDICATION
  34. LISINOPRIL [Concomitant]
     Indication: HYPERTENSION
  35. LOPRESSOR [Concomitant]
     Indication: PRODUCT USED FOR UNKNOWN INDICATION
     Dates: start: 2005
  36. METOPROLOL [Concomitant]
     Indication: PRODUCT USED FOR UNKNOWN INDICATION
     Dates: start: 2005, end: 2010
  37. METHYLPREDNISOLONE [Concomitant]
     Indication: PRODUCT USED FOR UNKNOWN INDICATION
  38. MIDAZOLAM [Concomitant]
     Indication: PRODUCT USED FOR UNKNOWN INDICATION
  39. MORPHINE [Concomitant]
     Indication: PRODUCT USED FOR UNKNOWN INDICATION
  40. NESIRITIDE [Concomitant]
     Indication: CARDIAC FAILURE CONGESTIVE
  41. NORVASC [Concomitant]
     Indication: PRODUCT USED FOR UNKNOWN INDICATION
  42. PERCOCET [Concomitant]
     Indication: PRODUCT USED FOR UNKNOWN INDICATION
  43. PHENERGAN [Concomitant]
     Indication: PRODUCT USED FOR UNKNOWN INDICATION
  44. PLAVIX [Concomitant]
     Indication: PRODUCT USED FOR UNKNOWN INDICATION
  45. PREDNISONE [Concomitant]
     Indication: PRODUCT USED FOR UNKNOWN INDICATION
  46. PREVACID [Concomitant]
     Indication: PRODUCT USED FOR UNKNOWN INDICATION
  47. PROCRIT [Concomitant]
     Indication: PRODUCT USED FOR UNKNOWN INDICATION
  48. PROGRAF [Concomitant]
     Indication: PRODUCT USED FOR UNKNOWN INDICATION
  49. PROPOFOL [Concomitant]
     Indication: PRODUCT USED FOR UNKNOWN INDICATION
  50. PROTAMINE [Concomitant]
     Indication: PRODUCT USED FOR UNKNOWN INDICATION
  51. RENAGEL [Concomitant]
     Indication: PRODUCT USED FOR UNKNOWN INDICATION
  52. SODIUM BICARBONATE [Concomitant]
     Indication: PRODUCT USED FOR UNKNOWN INDICATION
  53. SOLUMEDROL [Concomitant]
     Indication: PRODUCT USED FOR UNKNOWN INDICATION
  54. TOPROL XL [Concomitant]
     Indication: PRODUCT USED FOR UNKNOWN INDICATION
  55. VANCOMYCIN [Concomitant]
     Indication: PRODUCT USED FOR UNKNOWN INDICATION
  56. ZEMPLAR [Concomitant]
     Indication: PRODUCT USED FOR UNKNOWN INDICATION
  57. ZOFRAN [Concomitant]
     Indication: PRODUCT USED FOR UNKNOWN INDICATION

REACTIONS (1)
  - Nephrogenic systemic fibrosis [Not Recovered/Not Resolved]
